FAERS Safety Report 13354922 (Version 9)
Quarter: 2020Q3

REPORT INFORMATION
  Report Type: Spontaneous
  Country: US (occurrence: US)
  Receive Date: 20170321
  Receipt Date: 20200730
  Transmission Date: 20201102
  Serious: Yes (Congenital Anomaly, Other)
  Sender: FDA-Public Use
  Company Number: PHEH2017US008097

PATIENT
  Sex: Male

DRUGS (2)
  1. ZOFRAN [Suspect]
     Active Substance: ONDANSETRON HYDROCHLORIDE
     Indication: FOETAL EXPOSURE DURING PREGNANCY
     Route: 064
  2. ONDANSETRON TEVA [Suspect]
     Active Substance: ONDANSETRON
     Indication: FOETAL EXPOSURE DURING PREGNANCY
     Dosage: MOTHER DOSE: 08 MG, UNK
     Route: 064

REACTIONS (40)
  - Congenital anomaly [Unknown]
  - Foetal exposure during pregnancy [Unknown]
  - Nasopharyngitis [Unknown]
  - Pharyngitis [Unknown]
  - Atrial septal defect [Unknown]
  - Ventricular septal defect [Unknown]
  - Bicuspid aortic valve [Unknown]
  - Anhedonia [Unknown]
  - Anxiety [Unknown]
  - Vomiting [Unknown]
  - Wheezing [Unknown]
  - Aortic valve disease [Unknown]
  - Injury [Unknown]
  - Rash [Unknown]
  - Aortic stenosis [Unknown]
  - Cough [Unknown]
  - Paronychia [Unknown]
  - Cardiac murmur [Unknown]
  - Oropharyngeal pain [Unknown]
  - Pneumonia [Unknown]
  - Pyrexia [Unknown]
  - Asthma [Unknown]
  - Tonsillitis [Unknown]
  - Decreased appetite [Unknown]
  - White blood cell count decreased [Unknown]
  - Aortic dilatation [Unknown]
  - Hypersensitivity [Unknown]
  - Platelet count decreased [Unknown]
  - Aortic valve stenosis [Unknown]
  - Astigmatism [Unknown]
  - Influenza [Unknown]
  - Heart disease congenital [Unknown]
  - Pulmonary valve incompetence [Unknown]
  - Hypermetropia [Unknown]
  - Aortic valve incompetence [Unknown]
  - Pain [Unknown]
  - Emotional distress [Unknown]
  - Rhinitis [Unknown]
  - Knee deformity [Unknown]
  - Nausea [Unknown]
